FAERS Safety Report 10034661 (Version 2)
Quarter: 2014Q2

REPORT INFORMATION
  Report Type: Spontaneous
  Country: US (occurrence: US)
  Receive Date: 20140325
  Receipt Date: 20140509
  Transmission Date: 20141212
  Serious: Yes (Hospitalization)
  Sender: FDA-Public Use
  Company Number: US-AMGEN-USASP2014019600

PATIENT
  Age: 56 Year
  Sex: Female
  Weight: 63.04 kg

DRUGS (13)
  1. PROLIA [Suspect]
     Indication: OSTEOPOROSIS
     Dosage: 1 ML, Q6MO
     Route: 058
     Dates: start: 20130207
  2. LOVENOX [Concomitant]
  3. COUMADIN                           /00014802/ [Concomitant]
  4. GEODON                             /01487002/ [Concomitant]
  5. LOSARTAN [Concomitant]
  6. OMEPRAZOLE [Concomitant]
  7. POTASSIUM CITRATE [Concomitant]
  8. PROZAC [Concomitant]
  9. SIMVASTATIN [Concomitant]
  10. TOPAMAX [Concomitant]
  11. TYLENOL                            /00020001/ [Concomitant]
  12. VITAMIN D                          /00107901/ [Concomitant]
  13. CALCIUM [Concomitant]

REACTIONS (2)
  - Pulmonary embolism [Recovering/Resolving]
  - Hyperparathyroidism [Unknown]
